FAERS Safety Report 18119519 (Version 1)
Quarter: 2020Q3

REPORT INFORMATION
  Report Type: Spontaneous
  Country: GB (occurrence: GB)
  Receive Date: 20200806
  Receipt Date: 20200806
  Transmission Date: 20201103
  Serious: Yes (Other)
  Sender: FDA-Public Use
  Company Number: GB-PFIZER INC-2020294188

PATIENT
  Age: 20 Year
  Sex: Female

DRUGS (2)
  1. SERTRALINE HCL [Suspect]
     Active Substance: SERTRALINE HYDROCHLORIDE
     Indication: STRESS
     Dosage: 100 MG
     Route: 048
     Dates: start: 20200306
  2. SERTRALINE HCL [Suspect]
     Active Substance: SERTRALINE HYDROCHLORIDE
     Indication: STRESS
     Dosage: 50 MG
     Dates: start: 201810, end: 20200306

REACTIONS (16)
  - Dry skin [Unknown]
  - Skin irritation [Unknown]
  - Headache [Unknown]
  - Pruritus [Unknown]
  - Erythema [Unknown]
  - Feeling hot [Unknown]
  - Asthenia [Unknown]
  - Fatigue [Unknown]
  - Somnolence [Unknown]
  - Skin warm [Unknown]
  - Feeling abnormal [Unknown]
  - Swelling face [Unknown]
  - Temperature intolerance [Unknown]
  - Paraesthesia [Unknown]
  - Photosensitivity reaction [Unknown]
  - Heat exhaustion [Unknown]

NARRATIVE: CASE EVENT DATE: 20200401
